FAERS Safety Report 10443763 (Version 1)
Quarter: 2014Q3

REPORT INFORMATION
  Report Type: Spontaneous
  Country: US (occurrence: US)
  Receive Date: 20140910
  Receipt Date: 20140910
  Transmission Date: 20150326
  Serious: No
  Sender: FDA-Public Use
  Company Number: US-TEVA-491042USA

PATIENT

DRUGS (1)
  1. IRBESARTAN. [Suspect]
     Active Substance: IRBESARTAN

REACTIONS (1)
  - Pruritus [Unknown]
